FAERS Safety Report 23724998 (Version 5)
Quarter: 2024Q2

REPORT INFORMATION
  Report Type: Report from Study
  Country: EG (occurrence: EG)
  Receive Date: 20240410
  Receipt Date: 20240528
  Transmission Date: 20240716
  Serious: Yes (Disabling)
  Sender: FDA-Public Use
  Company Number: EG-002147023-NVSC2024EG072078

PATIENT
  Age: 45 Year
  Sex: Male
  Weight: 88 kg

DRUGS (1)
  1. MAYZENT [Suspect]
     Active Substance: SIPONIMOD
     Indication: Multiple sclerosis
     Dosage: 1 DOSAGE FORM, QD
     Route: 048
     Dates: start: 20240124

REACTIONS (8)
  - Visual impairment [Recovered/Resolved]
  - Vision blurred [Not Recovered/Not Resolved]
  - Diplopia [Unknown]
  - Eye pain [Unknown]
  - Burning sensation [Not Recovered/Not Resolved]
  - Ocular hyperaemia [Unknown]
  - Concomitant disease aggravated [Unknown]
  - Product dispensing issue [Unknown]

NARRATIVE: CASE EVENT DATE: 20240101
